FAERS Safety Report 11445132 (Version 2)
Quarter: 2015Q3

REPORT INFORMATION
  Report Type: Spontaneous
  Country: NO (occurrence: NO)
  Receive Date: 20150902
  Receipt Date: 20150909
  Transmission Date: 20151125
  Serious: Yes (Disabling, Other)
  Sender: FDA-Public Use
  Company Number: NO-WATSON-2015-18440

PATIENT
  Age: 66 Year
  Sex: Female

DRUGS (4)
  1. SIMVASTATIN AUROBINDO FILM-COATED TABLETS 20MG [Suspect]
     Active Substance: SIMVASTATIN
     Indication: HYPERCHOLESTEROLAEMIA
     Dosage: 40 MG, DAILY
     Route: 048
     Dates: start: 20100211, end: 20100301
  2. FEXOFENADINE [Concomitant]
     Active Substance: FEXOFENADINE\FEXOFENADINE HYDROCHLORIDE
     Indication: PRODUCT USED FOR UNKNOWN INDICATION
     Dosage: 120 MG, DAILY
     Route: 065
  3. LIPITOR [Suspect]
     Active Substance: ATORVASTATIN CALCIUM
     Indication: HYPERCHOLESTEROLAEMIA
     Dosage: 20 MG, DAILY
     Route: 065
     Dates: start: 20100301, end: 20100428
  4. LIPITOR [Suspect]
     Active Substance: ATORVASTATIN CALCIUM
     Dosage: 20 MG, 1X/DAY
     Dates: start: 20100301, end: 20100428

REACTIONS (7)
  - Dyspnoea [Unknown]
  - Rosacea [Recovering/Resolving]
  - Ophthalmic herpes zoster [Recovered/Resolved]
  - Ulcerative keratitis [Unknown]
  - Photosensitivity reaction [Unknown]
  - Herpes zoster [Recovered/Resolved]
  - Malaise [Unknown]

NARRATIVE: CASE EVENT DATE: 20100301
